FAERS Safety Report 26071445 (Version 1)
Quarter: 2025Q4

REPORT INFORMATION
  Report Type: Spontaneous
  Country: US (occurrence: US)
  Receive Date: 20251120
  Receipt Date: 20251120
  Transmission Date: 20260117
  Serious: No
  Sender: SEPTODONT
  Company Number: US-SEPTODONT-2025019560

PATIENT
  Age: 63 Year
  Sex: Male

DRUGS (3)
  1. EPINEPHRINE BITARTRATE\LIDOCAINE HYDROCHLORIDE [Suspect]
     Active Substance: EPINEPHRINE BITARTRATE\LIDOCAINE HYDROCHLORIDE
     Indication: Dental local anaesthesia
     Dosage: 3 CARTRIDGES.
     Route: 004
     Dates: start: 20250403, end: 20250403
  2. Hu Friedy syringe [Concomitant]
  3. Monoject 27Ga Long Needle [Concomitant]

REACTIONS (3)
  - Feeling jittery [Recovered/Resolved]
  - Tremor [Recovered/Resolved]
  - Blood pressure increased [Recovered/Resolved]

NARRATIVE: CASE EVENT DATE: 20250403
